FAERS Safety Report 20874081 (Version 3)
Quarter: 2022Q3

REPORT INFORMATION
  Report Type: Spontaneous
  Country: US (occurrence: US)
  Receive Date: 20220525
  Receipt Date: 20220712
  Transmission Date: 20221026
  Serious: No
  Sender: FDA-Public Use
  Company Number: US-PFIZER INC-202200636885

PATIENT
  Sex: Female

DRUGS (2)
  1. WATER [Suspect]
     Active Substance: WATER
     Dosage: UNK
     Route: 058
     Dates: start: 20220422
  2. DYSPORT [Suspect]
     Active Substance: ABOBOTULINUMTOXINA
     Dosage: UNK
     Route: 058
     Dates: start: 20220422

REACTIONS (5)
  - Injection site pain [Not Recovered/Not Resolved]
  - Injection site irritation [Not Recovered/Not Resolved]
  - Injection site swelling [Not Recovered/Not Resolved]
  - Injection site erythema [Not Recovered/Not Resolved]
  - Urticaria [Not Recovered/Not Resolved]

NARRATIVE: CASE EVENT DATE: 20220422
